FAERS Safety Report 11170618 (Version 1)
Quarter: 2015Q2

REPORT INFORMATION
  Report Type: Spontaneous
  Country: US (occurrence: None)
  Receive Date: 20150604
  Receipt Date: 20150604
  Transmission Date: 20150821
  Serious: No
  Sender: FDA-Public Use
  Company Number: None

PATIENT
  Age: 64 Year
  Sex: Female
  Weight: 67.13 kg

DRUGS (7)
  1. ESTRADIOL. [Suspect]
     Active Substance: ESTRADIOL
     Indication: NIGHT SWEATS
     Dosage: APLY 1 PATCH TWICE A WEEK?TWICE A WEEK?APPLIED AS MEDICATED PATCH TO SKIN
     Route: 061
     Dates: start: 20150415, end: 20150602
  2. ESTRADIOL. [Suspect]
     Active Substance: ESTRADIOL
     Indication: INSOMNIA
     Dosage: APLY 1 PATCH TWICE A WEEK?TWICE A WEEK?APPLIED AS MEDICATED PATCH TO SKIN
     Route: 061
     Dates: start: 20150415, end: 20150602
  3. ESTRADIOL. [Suspect]
     Active Substance: ESTRADIOL
     Indication: HOT FLUSH
     Dosage: APLY 1 PATCH TWICE A WEEK?TWICE A WEEK?APPLIED AS MEDICATED PATCH TO SKIN
     Route: 061
     Dates: start: 20150415, end: 20150602
  4. ESTRADIOL. [Suspect]
     Active Substance: ESTRADIOL
     Indication: MICTURITION URGENCY
     Dosage: APLY 1 PATCH TWICE A WEEK?TWICE A WEEK?APPLIED AS MEDICATED PATCH TO SKIN
     Route: 061
     Dates: start: 20150415, end: 20150602
  5. ESTRADIOL. [Concomitant]
     Active Substance: ESTRADIOL
  6. MULT-VITAMIN [Concomitant]
  7. LISINOPRIL. [Concomitant]
     Active Substance: LISINOPRIL

REACTIONS (5)
  - Insomnia [None]
  - Drug ineffective [None]
  - Urinary tract disorder [None]
  - Hot flush [None]
  - Product substitution issue [None]

NARRATIVE: CASE EVENT DATE: 20150415
